FAERS Safety Report 8374807-2 (Version None)
Quarter: 2012Q2

REPORT INFORMATION
  Report Type: 
  Country: None (occurrence: None)
  Receive Date: 20120521
  Receipt Date: 20120509
  Transmission Date: 20120825
  Serious: Yes (Hospitalization)
  Sender: FDA-Public Use
  Company Number: CA-JNJFOC-20120510268

PATIENT
  Sex: Male

DRUGS (1)
  1. REMICADE [Suspect]
     Indication: COLITIS ULCERATIVE
     Dosage: STOP DATE: 2011/2012 (DATE UNSPECIFIED)
     Route: 042

REACTIONS (7)
  - RASH GENERALISED [None]
  - LYMPHADENOPATHY [None]
  - AUTOIMMUNE DISORDER [None]
  - WEIGHT DECREASED [None]
  - TONSILLITIS [None]
  - PAIN [None]
  - VOMITING [None]
